FAERS Safety Report 25398815 (Version 1)
Quarter: 2025Q2

REPORT INFORMATION
  Report Type: Report from Study
  Country: US (occurrence: US)
  Receive Date: 20250604
  Receipt Date: 20250604
  Transmission Date: 20250717
  Serious: Yes (Hospitalization, Other)
  Sender: ABBVIE
  Company Number: US-ABBVIE-6306666

PATIENT
  Sex: Female

DRUGS (1)
  1. HUMIRA [Suspect]
     Active Substance: ADALIMUMAB
     Indication: Colitis ulcerative
     Route: 058
     Dates: start: 20241227

REACTIONS (9)
  - Ocular procedural complication [Unknown]
  - Nausea [Unknown]
  - Colitis ulcerative [Unknown]
  - Maternal exposure during pregnancy [Unknown]
  - Cataract [Unknown]
  - Eye disorder [Unknown]
  - Migraine [Unknown]
  - Decreased appetite [Unknown]
  - Intraocular pressure increased [Unknown]

NARRATIVE: CASE EVENT DATE: 20250101
